FAERS Safety Report 20717321 (Version 1)
Quarter: 2022Q2

REPORT INFORMATION
  Report Type: Spontaneous
  Country: US (occurrence: US)
  Receive Date: 20220417
  Receipt Date: 20220417
  Transmission Date: 20220720
  Serious: No
  Sender: FDA-Public Use
  Company Number: US-SA-SAC20220412002098

PATIENT
  Sex: Male

DRUGS (2)
  1. ALPROLIX [Suspect]
     Active Substance: EFTRENONACOG ALFA
     Dosage: 2725 IU (+/-10%)
     Route: 042
  2. ALPROLIX [Suspect]
     Active Substance: EFTRENONACOG ALFA
     Dosage: 2725 IU (+/-10%)
     Route: 042

REACTIONS (1)
  - Inappropriate schedule of product administration [Unknown]
